FAERS Safety Report 14759675 (Version 2)
Quarter: 2018Q2

REPORT INFORMATION
  Report Type: Spontaneous
  Country: US (occurrence: US)
  Receive Date: 20180413
  Receipt Date: 20180508
  Transmission Date: 20180711
  Serious: Yes (Hospitalization, Other)
  Sender: FDA-Public Use
  Company Number: US-ASTRAZENECA-2018SE46026

PATIENT
  Age: 54 Year
  Sex: Female
  Weight: 74.8 kg

DRUGS (14)
  1. ARIMIDEX [Suspect]
     Active Substance: ANASTROZOLE
     Indication: NEOPLASM MALIGNANT
     Route: 048
  2. NEXIUM [Suspect]
     Active Substance: ESOMEPRAZOLE MAGNESIUM
     Indication: GASTROOESOPHAGEAL REFLUX DISEASE
     Route: 048
     Dates: start: 2008
  3. NEXIUM [Suspect]
     Active Substance: ESOMEPRAZOLE MAGNESIUM
     Indication: OESOPHAGEAL DISORDER
     Dosage: 40 MG, DAILY, GENERIC PRODUCT
     Route: 048
     Dates: start: 2018
  4. AMBIEN [Concomitant]
     Active Substance: ZOLPIDEM TARTRATE
     Indication: SLEEP DISORDER
  5. PLAVIX [Concomitant]
     Active Substance: CLOPIDOGREL BISULFATE
     Indication: THROMBOSIS
     Dates: start: 201803
  6. NEXIUM [Suspect]
     Active Substance: ESOMEPRAZOLE MAGNESIUM
     Indication: OESOPHAGEAL DISORDER
     Route: 048
     Dates: start: 2008
  7. NEXIUM [Suspect]
     Active Substance: ESOMEPRAZOLE MAGNESIUM
     Indication: GASTROOESOPHAGEAL REFLUX DISEASE
     Route: 048
  8. TOPROL XL [Suspect]
     Active Substance: METOPROLOL SUCCINATE
     Indication: CARDIAC VALVE DISEASE
     Route: 048
     Dates: start: 1990, end: 201802
  9. TOPROL XL [Suspect]
     Active Substance: METOPROLOL SUCCINATE
     Indication: CARDIAC VALVE DISEASE
     Route: 048
     Dates: start: 201802
  10. NEXIUM [Suspect]
     Active Substance: ESOMEPRAZOLE MAGNESIUM
     Indication: OESOPHAGEAL DISORDER
     Route: 048
  11. NEXIUM [Suspect]
     Active Substance: ESOMEPRAZOLE MAGNESIUM
     Indication: GASTROOESOPHAGEAL REFLUX DISEASE
     Route: 048
     Dates: start: 2008
  12. NEXIUM [Suspect]
     Active Substance: ESOMEPRAZOLE MAGNESIUM
     Indication: GASTROOESOPHAGEAL REFLUX DISEASE
     Route: 048
  13. NEXIUM [Suspect]
     Active Substance: ESOMEPRAZOLE MAGNESIUM
     Indication: GASTROOESOPHAGEAL REFLUX DISEASE
     Dosage: 40 MG, DAILY, GENERIC PRODUCT
     Route: 048
     Dates: start: 2018
  14. NEXIUM [Suspect]
     Active Substance: ESOMEPRAZOLE MAGNESIUM
     Indication: GASTROOESOPHAGEAL REFLUX DISEASE
     Dosage: 40 MG, DAILY, GENERIC PRODUCT
     Route: 048
     Dates: start: 2018

REACTIONS (23)
  - Blood potassium decreased [Unknown]
  - Osteoporosis [Not Recovered/Not Resolved]
  - Breast cancer female [Not Recovered/Not Resolved]
  - Gastrooesophageal reflux disease [Unknown]
  - Hypophagia [Recovered/Resolved]
  - Diabetes mellitus [Not Recovered/Not Resolved]
  - Oesophageal disorder [Unknown]
  - Helicobacter infection [Unknown]
  - Arrhythmia [Unknown]
  - Blood pressure fluctuation [Unknown]
  - Osteoarthritis [Not Recovered/Not Resolved]
  - Drug ineffective [Unknown]
  - Nausea [Recovered/Resolved]
  - Staphylococcal infection [Unknown]
  - Gastric polyps [Not Recovered/Not Resolved]
  - Asthma [Unknown]
  - Product use in unapproved indication [Unknown]
  - Diarrhoea [Unknown]
  - Thrombosis [Unknown]
  - Hypotension [Unknown]
  - Blood pressure increased [Unknown]
  - Cardiac valve disease [Unknown]
  - Off label use [Not Recovered/Not Resolved]

NARRATIVE: CASE EVENT DATE: 2003
